FAERS Safety Report 15982748 (Version 1)
Quarter: 2019Q1

REPORT INFORMATION
  Report Type: Other
  Country: US (occurrence: US)
  Receive Date: 20190219
  Receipt Date: 20190219
  Transmission Date: 20190418
  Serious: Yes (Death)
  Sender: FDA-Public Use
  Company Number: US-B. BRAUN MEDICAL INC.-2062908

PATIENT
  Sex: Male

DRUGS (4)
  1. TIGECYCLINE. [Concomitant]
     Active Substance: TIGECYCLINE
  2. CEFTAZIDIME / AVIBACTAM [Concomitant]
  3. POLYMYXIN B. [Concomitant]
     Active Substance: POLYMYXIN B
  4. MEROPENEM FOR INJECTION USP AND SODIUM CHLORIDE INJECTION USP IN THE [Suspect]
     Active Substance: MEROPENEM\SODIUM CHLORIDE

REACTIONS (1)
  - Nephropathy toxic [None]
